FAERS Safety Report 10071952 (Version 1)
Quarter: 2014Q2

REPORT INFORMATION
  Report Type: Spontaneous
  Country: US (occurrence: US)
  Receive Date: 20140411
  Receipt Date: 20140411
  Transmission Date: 20141212
  Serious: Yes (Other)
  Sender: FDA-Public Use
  Company Number: US-BRISTOL-MYERS SQUIBB COMPANY-20607503

PATIENT
  Age: 68 Year
  Sex: Male
  Weight: 99.77 kg

DRUGS (1)
  1. BYETTA PEN DISPOSABLE [Suspect]
     Indication: TYPE 2 DIABETES MELLITUS
     Route: 058

REACTIONS (3)
  - Myocardial infarction [Unknown]
  - Hearing impaired [Unknown]
  - Expired product administered [Unknown]
